FAERS Safety Report 4874080-3 (Version None)
Quarter: 2006Q1

REPORT INFORMATION
  Report Type: 
  Country: None (occurrence: None)
  Receive Date: 20060104
  Receipt Date: 20051227
  Transmission Date: 20060701
  Serious: Yes (Hospitalization, Other)
  Sender: FDA-Public Use
  Company Number: KII-2005-0020387

PATIENT
  Age: 58 Year
  Sex: Female

DRUGS (4)
  1. OXYCODONE HCL [Suspect]
     Indication: PAIN
     Dosage: ORAL
     Route: 048
  2. ASPIRIN [Suspect]
  3. SSRI [Concomitant]
  4. ANTIEPILEPTICS [Concomitant]

REACTIONS (11)
  - ACCIDENTAL OVERDOSE [None]
  - AGITATION [None]
  - BODY TEMPERATURE INCREASED [None]
  - COMA [None]
  - HYPERTENSION [None]
  - LETHARGY [None]
  - MYOCARDIAL INFARCTION [None]
  - RESPIRATORY RATE INCREASED [None]
  - RESTLESSNESS [None]
  - SINUS TACHYCARDIA [None]
  - SOMNOLENCE [None]
